FAERS Safety Report 9414875 (Version 1)
Quarter: 2013Q3

REPORT INFORMATION
  Report Type: Spontaneous
  Country: US (occurrence: US)
  Receive Date: 20130723
  Receipt Date: 20130723
  Transmission Date: 20140515
  Serious: Yes (Other)
  Sender: FDA-Public Use
  Company Number: US-PURDUE-USA-2013-0104589

PATIENT
  Age: 71 Year
  Sex: Male
  Weight: 96.15 kg

DRUGS (1)
  1. OXYCODONE HCL IMMEDIATE RELEASE (91-490) [Suspect]
     Indication: PAIN
     Dosage: 5 MG, TID
     Route: 048
     Dates: start: 2001

REACTIONS (5)
  - Colon cancer [Unknown]
  - Malignant melanoma [Unknown]
  - Lymphoma [Unknown]
  - Polyp [Unknown]
  - Insomnia [Not Recovered/Not Resolved]
